FAERS Safety Report 6917542-7 (Version None)
Quarter: 2010Q3

REPORT INFORMATION
  Report Type: 
  Country: None (occurrence: None)
  Receive Date: 20100805
  Receipt Date: 20100727
  Transmission Date: 20110219
  Serious: Yes (Hospitalization)
  Sender: FDA-Public Use
  Company Number: 013065

PATIENT
  Sex: Female
  Weight: 111.1313 kg

DRUGS (3)
  1. CIMZIA [Suspect]
     Indication: RHEUMATOID ARTHRITIS
     Dosage: (200 MG 1X/2 WEEKS SUBCUTANEOUS)
     Route: 058
     Dates: start: 20100503, end: 20100628
  2. MTX /00113801/ [Concomitant]
  3. PREDNISONE [Concomitant]

REACTIONS (5)
  - FATIGUE [None]
  - HAEMATOCHEZIA [None]
  - NEOPLASM SKIN [None]
  - PRURITUS [None]
  - RASH ERYTHEMATOUS [None]
